FAERS Safety Report 9426696 (Version 1)
Quarter: 2013Q3

REPORT INFORMATION
  Report Type: Spontaneous
  Country: US (occurrence: US)
  Receive Date: 20130730
  Receipt Date: 20130730
  Transmission Date: 20140515
  Serious: No
  Sender: FDA-Public Use
  Company Number: US-SANOFI-AVENTIS-2012SA061121

PATIENT
  Age: 16 Year
  Sex: Male

DRUGS (3)
  1. AMBIEN [Suspect]
     Indication: INSOMNIA
     Route: 048
     Dates: start: 201207, end: 201207
  2. PROZAC [Concomitant]
  3. CLONIDINE [Concomitant]

REACTIONS (5)
  - Drug screen false positive [Unknown]
  - Abnormal behaviour [Unknown]
  - Somnolence [Unknown]
  - Somnambulism [Unknown]
  - Hypervigilance [Unknown]
